FAERS Safety Report 8442969-4 (Version None)
Quarter: 2012Q2

REPORT INFORMATION
  Report Type: 
  Country: None (occurrence: None)
  Receive Date: 20120615
  Receipt Date: 20120612
  Transmission Date: 20120825
  Serious: Yes (Hospitalization, Other)
  Sender: FDA-Public Use
  Company Number: IL-ELI_LILLY_AND_COMPANY-IL201206004604

PATIENT
  Sex: Female
  Weight: 56 kg

DRUGS (8)
  1. LANTUS [Concomitant]
     Indication: DIABETES MELLITUS
  2. FORTEO [Suspect]
     Indication: OSTEOPOROSIS
     Dosage: 20 UG, QD
     Route: 058
     Dates: start: 20110609
  3. PLAVIX [Concomitant]
     Indication: ANTICOAGULANT THERAPY
  4. CARVEDILOL [Concomitant]
  5. CALCIUM [Concomitant]
  6. LIPITOR [Concomitant]
     Indication: HYPERLIPIDAEMIA
  7. APIDRA [Concomitant]
     Indication: DIABETES MELLITUS
  8. IRON [Concomitant]

REACTIONS (1)
  - DISORIENTATION [None]
